FAERS Safety Report 13663063 (Version 1)
Quarter: 2017Q2

REPORT INFORMATION
  Report Type: Spontaneous
  Country: US (occurrence: US)
  Receive Date: 20170619
  Receipt Date: 20170619
  Transmission Date: 20170830
  Serious: No
  Sender: FDA-Public Use
  Company Number: US-BIOGEN-2017BI00416468

PATIENT
  Sex: Female

DRUGS (1)
  1. TYSABRI [Suspect]
     Active Substance: NATALIZUMAB
     Indication: MULTIPLE SCLEROSIS
     Route: 065
     Dates: start: 20150219, end: 20160606

REACTIONS (12)
  - Headache [Unknown]
  - Muscle spasms [Unknown]
  - Formication [Unknown]
  - Abdominal discomfort [Unknown]
  - Clumsiness [Unknown]
  - Hand-eye coordination impaired [Unknown]
  - Eye pain [Unknown]
  - Paraesthesia [Unknown]
  - Multiple sclerosis relapse [Unknown]
  - Vomiting [Unknown]
  - Motor dysfunction [Unknown]
  - Fatigue [Unknown]
